FAERS Safety Report 5475051-9 (Version None)
Quarter: 2007Q4

REPORT INFORMATION
  Report Type: 
  Country: None (occurrence: None)
  Receive Date: 20071002
  Receipt Date: 20070925
  Transmission Date: 20080405
  Serious: Yes (Hospitalization)
  Sender: FDA-Public Use
  Company Number: US-ELI_LILLY_AND_COMPANY-US200709005912

PATIENT
  Sex: Female

DRUGS (3)
  1. ILETIN [Suspect]
  2. HUMULIN N [Suspect]
     Dates: start: 20010101
  3. HUMULIN R [Suspect]
     Dates: start: 20010101

REACTIONS (7)
  - BLOOD GLUCOSE INCREASED [None]
  - CONSTIPATION [None]
  - DYSPNOEA [None]
  - HOSPITALISATION [None]
  - PARANOIA [None]
  - RETINOPATHY [None]
  - VISUAL DISTURBANCE [None]
